FAERS Safety Report 13399239 (Version 1)
Quarter: 2017Q2

REPORT INFORMATION
  Report Type: Spontaneous
  Country: US (occurrence: US)
  Receive Date: 20170404
  Receipt Date: 20170404
  Transmission Date: 20170830
  Serious: No
  Sender: FDA-Public Use
  Company Number: US-TEVA-752540ACC

PATIENT
  Age: 50 Year
  Sex: Female

DRUGS (9)
  1. COPAXONE [Suspect]
     Active Substance: GLATIRAMER ACETATE
     Indication: MULTIPLE SCLEROSIS
     Dosage: PRE FILLED SYRINGE
     Route: 058
  2. VALACICLOVIR [Concomitant]
     Active Substance: VALACYCLOVIR HYDROCHLORIDE
  3. MODAFINIL. [Concomitant]
     Active Substance: MODAFINIL
  4. EPINASTINE. [Concomitant]
     Active Substance: EPINASTINE HYDROCHLORIDE
  5. COZAAR [Concomitant]
     Active Substance: LOSARTAN POTASSIUM
  6. CARTIA XT [Concomitant]
     Active Substance: DILTIAZEM HYDROCHLORIDE
  7. LEXAPRO [Concomitant]
     Active Substance: ESCITALOPRAM OXALATE
  8. NAPROXEN. [Concomitant]
     Active Substance: NAPROXEN
  9. TRINESSA [Concomitant]
     Active Substance: ETHINYL ESTRADIOL\NORGESTIMATE

REACTIONS (1)
  - Injection site reaction [Unknown]

NARRATIVE: CASE EVENT DATE: 201702
